FAERS Safety Report 9095522 (Version 1)
Quarter: 2013Q1

REPORT INFORMATION
  Report Type: Spontaneous
  Country: IT (occurrence: None)
  Receive Date: 20130124
  Receipt Date: 20130124
  Transmission Date: 20140127
  Serious: Yes (Other)
  Sender: FDA-Public Use
  Company Number: 2013AP000095

PATIENT
  Age: 55 Year
  Sex: Male

DRUGS (1)
  1. AZITHROMYCIN (AZITHROMYCIN) [Suspect]
     Route: 048
     Dates: start: 20121228, end: 20121229

REACTIONS (2)
  - Throat tightness [None]
  - Urticaria [None]
